FAERS Safety Report 5425922-4 (Version None)
Quarter: 2007Q3

REPORT INFORMATION
  Report Type: 
  Country: None (occurrence: None)
  Receive Date: 20070827
  Receipt Date: 20070822
  Transmission Date: 20080115
  Serious: Yes (Hospitalization)
  Sender: FDA-Public Use
  Company Number: FR-BRISTOL-MYERS SQUIBB COMPANY-13887476

PATIENT
  Age: 44 Year
  Sex: Female

DRUGS (2)
  1. BRISTAMOX [Suspect]
     Indication: BRONCHITIS
     Route: 048
     Dates: start: 20061003, end: 20061008
  2. LEVOTHYROXINE SODIUM [Concomitant]

REACTIONS (5)
  - CHEILITIS [None]
  - CONJUNCTIVITIS [None]
  - RASH MACULO-PAPULAR [None]
  - URTICARIA VESICULOSA [None]
  - WHITE BLOOD CELL COUNT INCREASED [None]
